FAERS Safety Report 23784914 (Version 1)
Quarter: 2024Q2

REPORT INFORMATION
  Report Type: Spontaneous
  Country: CN (occurrence: CN)
  Receive Date: 20240425
  Receipt Date: 20240425
  Transmission Date: 20240716
  Serious: Yes (Other)
  Sender: FDA-Public Use
  Company Number: CN-002147023-NVSC2024CN086481

PATIENT
  Age: 6 Year
  Sex: Male
  Weight: 20 kg

DRUGS (1)
  1. TOBREX [Suspect]
     Active Substance: TOBRAMYCIN
     Indication: Conjunctivitis
     Dosage: 1.000 DRP, TID (LOCAL ADMINISTRATION) ROUTE OF ADMIN (FREE TEXT): LOCAL
     Route: 065
     Dates: start: 20240405, end: 20240406

REACTIONS (2)
  - Eye discharge [Recovering/Resolving]
  - Apraxia [Unknown]

NARRATIVE: CASE EVENT DATE: 20240405
